FAERS Safety Report 8284396-9 (Version None)
Quarter: 2012Q2

REPORT INFORMATION
  Report Type: 
  Country: None (occurrence: None)
  Receive Date: 20120413
  Receipt Date: 20110531
  Transmission Date: 20120825
  Serious: No
  Sender: FDA-Public Use
  Company Number: US-ASTRAZENECA-2010SE36403

PATIENT
  Age: 65 Year
  Sex: Male

DRUGS (4)
  1. ATENOLOL [Concomitant]
  2. PRILOSEC OTC [Suspect]
     Route: 048
  3. HYDROCHLOROTHIAZIDE [Concomitant]
  4. NEXIUM [Suspect]
     Route: 048

REACTIONS (3)
  - DRUG DOSE OMISSION [None]
  - DRUG INEFFECTIVE [None]
  - MALAISE [None]
